FAERS Safety Report 6986811-7 (Version None)
Quarter: 2010Q3

REPORT INFORMATION
  Report Type: 
  Country: None (occurrence: None)
  Receive Date: 20100915
  Receipt Date: 20090810
  Transmission Date: 20110219
  Serious: No
  Sender: FDA-Public Use
  Company Number: US-WYE-H10538509

PATIENT
  Sex: Male
  Weight: 87.17 kg

DRUGS (6)
  1. PRISTIQ [Suspect]
     Indication: DEPRESSION
     Route: 048
     Dates: start: 20090101
  2. OMEPRAZOLE [Concomitant]
  3. FINASTERIDE [Concomitant]
  4. DOXEPIN HCL [Concomitant]
  5. TAMSULOSIN HYDROCHLORIDE [Concomitant]
  6. VICODIN [Concomitant]

REACTIONS (1)
  - MEDICATION RESIDUE [None]
